FAERS Safety Report 5702185-3 (Version None)
Quarter: 2008Q2

REPORT INFORMATION
  Report Type: 
  Country: None (occurrence: None)
  Receive Date: 20080411
  Receipt Date: 20071105
  Transmission Date: 20081010
  Serious: No
  Sender: FDA-Public Use
  Company Number: US-ABBOTT-07P-163-0423775-00

PATIENT
  Sex: Female
  Weight: 63.56 kg

DRUGS (2)
  1. DEPAKOTE [Suspect]
     Indication: DEPRESSION
     Route: 048
     Dates: start: 20050101, end: 20050101
  2. BARE ESSENTIALS FACIAL CREAM [Suspect]
     Indication: DRUG USE FOR UNKNOWN INDICATION
     Route: 061

REACTIONS (2)
  - RASH [None]
  - STRONGYLOIDIASIS [None]
